FAERS Safety Report 17729419 (Version 2)
Quarter: 2020Q2

REPORT INFORMATION
  Report Type: Spontaneous
  Country: CA (occurrence: CA)
  Receive Date: 20200430
  Receipt Date: 20200520
  Transmission Date: 20200714
  Serious: Yes (Disabling)
  Sender: FDA-Public Use
  Company Number: CA-PFIZER INC-2019474253

PATIENT
  Age: 60 Year
  Sex: Female

DRUGS (7)
  1. FOLVITE [FOLIC ACID] [Concomitant]
     Dosage: 5 MG 3-4X/WEEKLY
     Route: 048
  2. NAPROSYN [Concomitant]
     Active Substance: NAPROXEN
     Dosage: UNK
  3. NAPROXEN. [Concomitant]
     Active Substance: NAPROXEN
     Dosage: 500 MG, 2X/DAY(WITH MEALS)
     Route: 048
  4. ACTEMRA [Concomitant]
     Active Substance: TOCILIZUMAB
     Dosage: 162 MG, WEEKLY (INJECT 162 MG UNDER THE SKIN EVERY SEVEN DAYS)
     Route: 058
     Dates: end: 20191104
  5. METHOTREXATE SODIUM. [Suspect]
     Active Substance: METHOTREXATE SODIUM
     Indication: RHEUMATOID ARTHRITIS
     Dosage: 17.5 MG, WEEKLY (2.5 MG TABLET TAKE 17.5 MG BY MOUTH ONE TIME PER WEEK)
     Route: 048
     Dates: start: 201904
  6. XELJANZ [Concomitant]
     Active Substance: TOFACITINIB CITRATE
     Indication: RHEUMATOID ARTHRITIS
     Dosage: 5 MG, 2X/DAY
     Route: 048
     Dates: start: 20191101
  7. PREDNISONE. [Concomitant]
     Active Substance: PREDNISONE
     Indication: RHEUMATOID ARTHRITIS
     Dosage: UNK

REACTIONS (13)
  - Cervical radiculopathy [Recovering/Resolving]
  - Blood creatinine decreased [Unknown]
  - Drug ineffective [Not Recovered/Not Resolved]
  - Condition aggravated [Unknown]
  - Feeling abnormal [Unknown]
  - Loss of personal independence in daily activities [Unknown]
  - Inappropriate affect [Unknown]
  - Osteoarthritis [Recovering/Resolving]
  - Swelling [Unknown]
  - Mental disorder [Unknown]
  - Crying [Unknown]
  - Weight increased [Unknown]
  - Insomnia [Unknown]

NARRATIVE: CASE EVENT DATE: 2019
